FAERS Safety Report 24465810 (Version 1)
Quarter: 2024Q4

REPORT INFORMATION
  Report Type: Report from Study
  Country: US (occurrence: US)
  Receive Date: 20241018
  Receipt Date: 20241018
  Transmission Date: 20250114
  Serious: No
  Sender: ROCHE
  Company Number: US-ROCHE-3538212

PATIENT
  Age: 59 Year
  Sex: Female

DRUGS (9)
  1. XOLAIR [Suspect]
     Active Substance: OMALIZUMAB
     Indication: Idiopathic urticaria
     Dosage: 150 MG/ML, LAST RECEIVED DATE: 12/OCT/2023
     Route: 058
  2. XOLAIR [Suspect]
     Active Substance: OMALIZUMAB
  3. HYDROXYZINE HYDROCHLORIDE [Concomitant]
     Active Substance: HYDROXYZINE HYDROCHLORIDE
  4. FEXOFENADINE [Concomitant]
     Active Substance: FEXOFENADINE HYDROCHLORIDE
  5. MONTELUKAST [Concomitant]
     Active Substance: MONTELUKAST
  6. HYDROXYZINE HYDROCHLORIDE [Concomitant]
     Active Substance: HYDROXYZINE HYDROCHLORIDE
  7. VITAMIN D3 [Concomitant]
     Active Substance: CHOLECALCIFEROL
  8. POTASSIUM [Concomitant]
     Active Substance: POTASSIUM
  9. ATENOLOL [Concomitant]
     Active Substance: ATENOLOL

REACTIONS (2)
  - Abdominal distension [Unknown]
  - Abdominal discomfort [Unknown]
